FAERS Safety Report 9022015 (Version 1)
Quarter: 2013Q1

REPORT INFORMATION
  Report Type: Spontaneous
  Country: US (occurrence: US)
  Receive Date: 20130118
  Receipt Date: 20130118
  Transmission Date: 20140127
  Serious: Yes (Other)
  Sender: FDA-Public Use
  Company Number: US-PFIZER INC-2013023150

PATIENT
  Age: 65 Year
  Sex: Male
  Weight: 90.7 kg

DRUGS (9)
  1. DILANTIN [Suspect]
     Indication: CONVULSION
     Dosage: 300 MG IN THE MORNING AND 200 MG IN THE EVENING
     Route: 048
     Dates: start: 201212, end: 201212
  2. TRAMADOL [Concomitant]
     Indication: MUSCULOSKELETAL PAIN
     Dosage: UNK, 2X/DAY
  3. METOPROLOL [Concomitant]
     Indication: HYPERTENSION
     Dosage: 25 MG, 2X/DAY
  4. LISINOPRIL [Concomitant]
     Indication: HYPERTENSION
     Dosage: UNK, 1X/DAY
  5. ASPIRIN [Concomitant]
     Dosage: 81 MG, UNK
  6. PROZAC [Concomitant]
     Dosage: 25 MG, UNK
  7. CLONIDINE [Concomitant]
     Dosage: 0.2 MG, 2X/DAY
  8. PLAVIX [Concomitant]
     Dosage: 75 MG, 1X/DAY
  9. LIPITOR [Concomitant]
     Indication: BLOOD CHOLESTEROL INCREASED
     Dosage: 20 MG, 1X/DAY
     Route: 048

REACTIONS (6)
  - Intentional drug misuse [Unknown]
  - Dyspnoea [Recovered/Resolved]
  - Blister [Recovered/Resolved]
  - Swelling face [Recovered/Resolved]
  - Pruritus [Recovered/Resolved]
  - Rash generalised [Recovered/Resolved]
